FAERS Safety Report 24587696 (Version 1)
Quarter: 2024Q4

REPORT INFORMATION
  Report Type: Spontaneous
  Country: US (occurrence: US)
  Receive Date: 20241107
  Receipt Date: 20241107
  Transmission Date: 20250114
  Serious: Yes (Other)
  Sender: SANOFI AVENTIS
  Company Number: US-SANOFI-02282851

PATIENT
  Age: 60 Year
  Sex: Female

DRUGS (1)
  1. LANTUS [Suspect]
     Active Substance: INSULIN GLARGINE
     Indication: Diabetes mellitus
     Dosage: 70 UNITS IN THE MORNING AND 30 UNITS AT NIGHT
     Route: 065

REACTIONS (3)
  - Glaucoma [Unknown]
  - Visual impairment [Unknown]
  - Off label use [Unknown]
